FAERS Safety Report 4894694-4 (Version None)
Quarter: 2006Q1

REPORT INFORMATION
  Report Type: 
  Country: None (occurrence: None)
  Receive Date: 20060130
  Receipt Date: 20060106
  Transmission Date: 20060701
  Serious: Yes (Hospitalization, Other)
  Sender: FDA-Public Use
  Company Number: JP-SP-2006-00074

PATIENT
  Age: 46 Year
  Sex: Female

DRUGS (5)
  1. IMMUCYST [Suspect]
     Indication: URINARY TRACT CARCINOMA IN SITU
     Route: 065
     Dates: start: 20051208, end: 20051216
  2. IMMUCYST [Suspect]
     Route: 065
     Dates: start: 20051208, end: 20051216
  3. IMMUCYST [Suspect]
     Route: 065
     Dates: start: 20051208, end: 20051216
  4. ISONIAZID [Suspect]
     Indication: ANTIBIOTIC PROPHYLAXIS
     Route: 048
     Dates: start: 20051208, end: 20051226
  5. ISONIAZID [Suspect]
     Route: 048
     Dates: start: 20051208, end: 20051226

REACTIONS (6)
  - BACK PAIN [None]
  - COUGH [None]
  - INSOMNIA [None]
  - LIVER FUNCTION TEST ABNORMAL [None]
  - PRODUCTIVE COUGH [None]
  - PYREXIA [None]
